FAERS Safety Report 5519246-4 (Version None)
Quarter: 2007Q4

REPORT INFORMATION
  Report Type: 
  Country: None (occurrence: None)
  Receive Date: 20071116
  Receipt Date: 20071107
  Transmission Date: 20080405
  Serious: Yes (Other)
  Sender: FDA-Public Use
  Company Number: US-AMGEN-STX245577

PATIENT
  Sex: Male
  Weight: 88.5 kg

DRUGS (6)
  1. ENBREL [Suspect]
     Indication: RHEUMATOID ARTHRITIS
     Route: 058
     Dates: start: 20070925, end: 20070927
  2. PLAQUENIL [Concomitant]
     Dates: start: 20000417
  3. SALAGEN [Concomitant]
     Dates: start: 20030314
  4. ACTONEL [Concomitant]
     Dates: start: 20030314
  5. MOBIC [Concomitant]
     Dates: start: 20060515
  6. FLOMAX [Concomitant]

REACTIONS (5)
  - CHEST DISCOMFORT [None]
  - HYPERSENSITIVITY [None]
  - PRURITUS [None]
  - SKIN BURNING SENSATION [None]
  - SWELLING FACE [None]
